FAERS Safety Report 20216758 (Version 1)
Quarter: 2021Q4

REPORT INFORMATION
  Report Type: Spontaneous
  Country: CN (occurrence: CN)
  Receive Date: 20211222
  Receipt Date: 20211222
  Transmission Date: 20220303
  Serious: Yes (Hospitalization, Other)
  Sender: FDA-Public Use
  Company Number: CN-009507513-2112CHN006108

PATIENT
  Age: 63 Year
  Sex: Male
  Weight: 63 kg

DRUGS (3)
  1. KEYTRUDA [Suspect]
     Active Substance: PEMBROLIZUMAB
     Indication: Gallbladder cancer
     Dosage: 200 MG, ONCE
     Route: 041
     Dates: start: 20210923, end: 20210923
  2. FLUOROURACIL [Suspect]
     Active Substance: FLUOROURACIL
     Indication: Gallbladder cancer
     Dosage: 700 MG, ONCE
     Route: 041
     Dates: start: 20210923, end: 20210923
  3. OXALIPLATIN [Suspect]
     Active Substance: OXALIPLATIN
     Indication: Gallbladder cancer
     Dosage: 150 MG, ONCE
     Route: 041
     Dates: start: 20210923, end: 20210923

REACTIONS (3)
  - Leukopenia [Recovering/Resolving]
  - Neutropenia [Recovering/Resolving]
  - Product use in unapproved indication [Unknown]

NARRATIVE: CASE EVENT DATE: 20210923
